FAERS Safety Report 15381043 (Version 2)
Quarter: 2018Q4

REPORT INFORMATION
  Report Type: Spontaneous
  Country: FR (occurrence: FR)
  Receive Date: 20180913
  Receipt Date: 20181018
  Transmission Date: 20190204
  Serious: Yes (Hospitalization)
  Sender: FDA-Public Use
  Company Number: FR-SA-2018SA246660

PATIENT
  Age: 57 Year
  Sex: Female

DRUGS (2)
  1. TROPHICREME [Suspect]
     Active Substance: ESTRIOL
     Indication: VULVOVAGINAL DISORDER
     Dosage: UNK UNK, UNK
     Route: 067
     Dates: start: 20180725, end: 20180801
  2. NASACORT [Suspect]
     Active Substance: TRIAMCINOLONE ACETONIDE
     Indication: RHINITIS ALLERGIC
     Dosage: 55 ?G/DOSE
     Route: 045
     Dates: start: 20180703, end: 20180707

REACTIONS (2)
  - Urticaria [Recovered/Resolved]
  - Rash maculo-papular [Recovered/Resolved]

NARRATIVE: CASE EVENT DATE: 20180803
